FAERS Safety Report 9481911 (Version 2)
Quarter: 2013Q3

REPORT INFORMATION
  Report Type: Spontaneous
  Country: US (occurrence: None)
  Receive Date: 20130823
  Receipt Date: 20130905
  Transmission Date: 20140515
  Serious: Yes (Other)
  Sender: FDA-Public Use
  Company Number: ABR_01084_2013

PATIENT
  Sex: Female
  Weight: 77.11 kg

DRUGS (13)
  1. ERYTHROMYCIN [Suspect]
     Indication: PNEUMONIA
     Dates: start: 2003
  2. DEPAKOTE [Suspect]
     Indication: EPILEPSY
     Dates: start: 1983, end: 1990
  3. DEPAKOTE [Suspect]
     Indication: EPILEPSY
     Dates: start: 201202
  4. DEPAKENE [Suspect]
     Indication: EPILEPSY
     Dates: start: 1981, end: 1983
  5. HUMIRA [Suspect]
     Indication: RHEUMATOID ARTHRITIS
     Dosage: 1/2-2 DOSES ONLY
     Dates: start: 201306, end: 201307
  6. LEVAQUIN [Suspect]
     Indication: PNEUMONIA
  7. KEFLEX /00145501/ [Suspect]
     Indication: PNEUMONIA
     Dates: start: 1993
  8. ARAVA [Suspect]
     Indication: RHEUMATOID ARTHRITIS
     Dates: start: 201304
  9. METHOTREXATE [Suspect]
     Indication: RHEUMATOID ARTHRITIS
     Dates: end: 201307
  10. MACROLIDES [Suspect]
     Indication: PRODUCT USED FOR UNKNOWN INDICATION
  11. SULFADIAZINE [Suspect]
     Indication: PRODUCT USED FOR UNKNOWN INDICATION
  12. DAYPRO [Concomitant]
  13. TYLENOL WITH CODEIN # 3 [Concomitant]

REACTIONS (29)
  - Synovial cyst [None]
  - Anaphylactic reaction [None]
  - Pyrexia [None]
  - Dehydration [None]
  - Thyroid neoplasm [None]
  - Rheumatoid arthritis [None]
  - Nausea [None]
  - Vomiting [None]
  - Diarrhoea [None]
  - Tremor [None]
  - Multiple allergies [None]
  - Nervous system disorder [None]
  - Emotional disorder [None]
  - Fatigue [None]
  - Hallucination [None]
  - Cough [None]
  - Haematochezia [None]
  - Dyspnoea [None]
  - Visual impairment [None]
  - Back pain [None]
  - Liver function test abnormal [None]
  - Gait disturbance [None]
  - Oedema peripheral [None]
  - Pain [None]
  - Neck pain [None]
  - Pain in extremity [None]
  - Laryngitis [None]
  - Hypersensitivity [None]
  - Pneumonia [None]
